FAERS Safety Report 11999384 (Version 1)
Quarter: 2016Q1

REPORT INFORMATION
  Report Type: Spontaneous
  Country: IE (occurrence: IE)
  Receive Date: 20160204
  Receipt Date: 20160204
  Transmission Date: 20160526
  Serious: Yes (Other)
  Sender: FDA-Public Use
  Company Number: IE-009507513-1602IRL002182

PATIENT
  Age: 56 Year
  Sex: Male
  Weight: 85 kg

DRUGS (15)
  1. TYGACIL [Concomitant]
     Active Substance: TIGECYCLINE
  2. CYCLIZINE [Concomitant]
     Active Substance: CYCLIZINE
  3. MEROPENEM. [Concomitant]
     Active Substance: MEROPENEM
  4. CIPROFLOXACIN. [Concomitant]
     Active Substance: CIPROFLOXACIN
  5. ONDANSETRON [Concomitant]
     Active Substance: ONDANSETRON
  6. ZERBAXA [Suspect]
     Active Substance: CEFTOLOZANE SULFATE\TAZOBACTAM SODIUM
     Indication: ABDOMINAL INFECTION
     Dosage: 1 DOSE FORM (500 MG/ 250 MG), EVERY HOURLY
     Route: 042
     Dates: start: 20151204
  7. ALBUTEROL. [Concomitant]
     Active Substance: ALBUTEROL
  8. BISOPROLOL [Concomitant]
     Active Substance: BISOPROLOL
  9. FLUOXETINE [Concomitant]
     Active Substance: FLUOXETINE HYDROCHLORIDE
  10. DUROGESIC [Concomitant]
     Active Substance: FENTANYL
  11. ESOMEPRAZOLE [Concomitant]
     Active Substance: ESOMEPRAZOLE
  12. GENTAMICIN. [Concomitant]
     Active Substance: GENTAMICIN
  13. PROCHLORPERAZINE. [Concomitant]
     Active Substance: PROCHLORPERAZINE
  14. ECALTA [Concomitant]
     Active Substance: ANIDULAFUNGIN
  15. DIAZEPAM. [Concomitant]
     Active Substance: DIAZEPAM
     Dosage: UNK, PRN

REACTIONS (4)
  - Dystonia [Recovered/Resolved]
  - Myoclonus [Recovered/Resolved]
  - Seizure [Recovered/Resolved]
  - Muscle twitching [Recovered/Resolved]

NARRATIVE: CASE EVENT DATE: 20160117
